FAERS Safety Report 4501198-7 (Version None)
Quarter: 2004Q4

REPORT INFORMATION
  Report Type: 
  Country: None (occurrence: None)
  Receive Date: 20041115
  Receipt Date: 20041019
  Transmission Date: 20050328
  Serious: Yes (Hospitalization)
  Sender: FDA-Public Use
  Company Number: DE-BRISTOL-MYERS SQUIBB COMPANY-12737938

PATIENT
  Age: 48 Year
  Sex: Female
  Weight: 61 kg

DRUGS (3)
  1. TAXOL [Suspect]
     Indication: OVARIAN CANCER
     Dosage: THERAPY DATES: 22-MAR TO 06-JUL-2004
     Route: 042
     Dates: start: 20040706, end: 20040706
  2. CARBOPLATIN [Suspect]
     Indication: OVARIAN CANCER
     Dosage: THERAPY DATES: 22-MAR TO 06-JUL-2004
     Route: 042
     Dates: start: 20040706, end: 20040706
  3. GEMZAR [Suspect]
     Indication: OVARIAN CANCER
     Dosage: THERAPY DATES: 29-MAR TO 13-JUL-2004
     Route: 042
     Dates: start: 20040713, end: 20040713

REACTIONS (3)
  - PANCYTOPENIA [None]
  - PYREXIA [None]
  - SYNCOPE [None]
